FAERS Safety Report 14592728 (Version 1)
Quarter: 2018Q1

REPORT INFORMATION
  Report Type: Spontaneous
  Country: DE (occurrence: DE)
  Receive Date: 20180302
  Receipt Date: 20180302
  Transmission Date: 20180509
  Serious: Yes (Hospitalization)
  Sender: FDA-Public Use
  Company Number: DE-TEVA-2018-DE-861804

PATIENT
  Age: 62 Year
  Sex: Female
  Weight: 67 kg

DRUGS (32)
  1. PARACETAMOL [Concomitant]
     Active Substance: ACETAMINOPHEN
     Route: 048
     Dates: start: 20160202, end: 20160202
  2. KALIUM VERLA [Concomitant]
     Active Substance: POTASSIUM CITRATE
     Route: 048
     Dates: start: 20151105
  3. PROPRANOLOL [Concomitant]
     Active Substance: PROPRANOLOL HYDROCHLORIDE
     Route: 048
     Dates: start: 20160112, end: 20160124
  4. PREDNISOLONE. [Suspect]
     Active Substance: PREDNISOLONE
     Indication: PRODUCT USED FOR UNKNOWN INDICATION
     Route: 065
     Dates: start: 20160324
  5. OBINUTUZUMAB. [Suspect]
     Active Substance: OBINUTUZUMAB
     Indication: CHRONIC LYMPHOCYTIC LEUKAEMIA
     Dosage: LAST DOSE PRIOR TO ONSET OF FIRST EPISODE OF NEUTROPENIA: 30/NOV/2015?LAST DOSE PRIOR TO ONSET OF TH
     Dates: start: 20151105, end: 20160301
  6. EUTHYROX [Concomitant]
     Active Substance: LEVOTHYROXINE SODIUM
     Route: 048
     Dates: start: 200507
  7. VENETOCLAX. [Suspect]
     Active Substance: VENETOCLAX
     Indication: CHRONIC LYMPHOCYTIC LEUKAEMIA
     Dosage: STARTING DOSE: 20 MG, CONTINUOUSLY STARTING IN CYCLE 2 WITH A LOW DOSE ESCALATION TO 50 MG?LAST DOSE
     Route: 048
     Dates: start: 20151130, end: 20151229
  8. KALIUM VERLA [Concomitant]
     Active Substance: POTASSIUM CITRATE
     Dosage: UNITS:MVAL
     Route: 048
     Dates: start: 20151229, end: 20160101
  9. ALLOPURINOL. [Concomitant]
     Active Substance: ALLOPURINOL
     Route: 048
     Dates: start: 20151105
  10. RANITIDIN [Concomitant]
     Active Substance: RANITIDINE HYDROCHLORIDE
     Dates: start: 20160202, end: 20160202
  11. CYCLOPHOSPHAMIDE. [Suspect]
     Active Substance: CYCLOPHOSPHAMIDE
     Indication: PRODUCT USED FOR UNKNOWN INDICATION
     Route: 065
     Dates: start: 20160324
  12. FENISTIL (GERMANY) [Concomitant]
     Dates: start: 20160202, end: 20160202
  13. NEULASTA [Concomitant]
     Active Substance: PEGFILGRASTIM
     Route: 058
     Dates: start: 20151107, end: 20151107
  14. SOLU DECORTIN [Concomitant]
     Active Substance: PREDNISOLONE SODIUM SUCCINATE
     Dates: start: 20151105, end: 20151106
  15. VENETOCLAX. [Suspect]
     Active Substance: VENETOCLAX
     Dosage: LAST DOSE PRIOR TO ONSET OF SECOND EPISODE OF NEUTROPENIA: 24/JAN/2016?DOSE REDUCED?LAST DOSE PRIOR
     Route: 048
     Dates: start: 20160124, end: 20160324
  16. RITUXIMAB. [Suspect]
     Active Substance: RITUXIMAB
     Indication: PRODUCT USED FOR UNKNOWN INDICATION
     Route: 065
     Dates: start: 20160324
  17. PARACETAMOL [Concomitant]
     Active Substance: ACETAMINOPHEN
     Route: 048
     Dates: start: 20151105, end: 20151106
  18. PROPRANOLOL [Concomitant]
     Active Substance: PROPRANOLOL HYDROCHLORIDE
     Route: 048
     Dates: start: 20160107, end: 20160111
  19. PROPRANOLOL [Concomitant]
     Active Substance: PROPRANOLOL HYDROCHLORIDE
     Route: 048
     Dates: start: 201207
  20. CIPROFLOXACIN. [Concomitant]
     Active Substance: CIPROFLOXACIN
     Route: 048
     Dates: start: 20151107
  21. NEULASTA [Concomitant]
     Active Substance: PEGFILGRASTIM
     Route: 058
     Dates: start: 20160215, end: 20160216
  22. BENDAMUSTINE [Suspect]
     Active Substance: BENDAMUSTINE
     Indication: CHRONIC LYMPHOCYTIC LEUKAEMIA
     Dosage: LAST DOSE PRIOR TO ONSET OF EVENTS ON 16/OCT/2015.
     Dates: start: 20151015, end: 20151104
  23. NEULASTA [Concomitant]
     Active Substance: PEGFILGRASTIM
     Route: 058
     Dates: start: 20151230, end: 20151230
  24. PANTOPRAZOL [Concomitant]
     Active Substance: PANTOPRAZOLE SODIUM
     Route: 065
     Dates: start: 201207
  25. ZOLEDRONIC ACID [Concomitant]
     Active Substance: ZOLEDRONIC ACID
     Dates: start: 20160203, end: 20160203
  26. SOLU DECORTIN [Concomitant]
     Active Substance: PREDNISOLONE SODIUM SUCCINATE
     Dates: start: 20160202, end: 20160202
  27. FENISTIL (GERMANY) [Concomitant]
     Dates: start: 20151105, end: 20151106
  28. VINCRISTINE [Suspect]
     Active Substance: VINCRISTINE
     Indication: PRODUCT USED FOR UNKNOWN INDICATION
     Route: 065
     Dates: start: 20160324
  29. DOXORUBICIN [Suspect]
     Active Substance: DOXORUBICIN
     Indication: PRODUCT USED FOR UNKNOWN INDICATION
     Route: 065
     Dates: start: 20160324
  30. PROPRANOLOL [Concomitant]
     Active Substance: PROPRANOLOL HYDROCHLORIDE
     Route: 048
     Dates: start: 20160125
  31. RANITIDIN [Concomitant]
     Active Substance: RANITIDINE HYDROCHLORIDE
     Dates: start: 20151105, end: 20151106
  32. FERRO SANOL [Concomitant]
     Active Substance: FERROUS GLYCINE SULFATE
     Route: 048
     Dates: start: 201207

REACTIONS (5)
  - Thrombocytopenia [Recovered/Resolved]
  - Febrile bone marrow aplasia [Recovered/Resolved]
  - Neutropenia [Not Recovered/Not Resolved]
  - Febrile neutropenia [Recovered/Resolved]
  - Febrile neutropenia [Recovered/Resolved]

NARRATIVE: CASE EVENT DATE: 20151201
